FAERS Safety Report 13933181 (Version 1)
Quarter: 2017Q3

REPORT INFORMATION
  Report Type: Spontaneous
  Country: US (occurrence: US)
  Receive Date: 20170904
  Receipt Date: 20170904
  Transmission Date: 20171127
  Serious: Yes (Hospitalization)
  Sender: FDA-Public Use
  Company Number: US-JNJFOC-20170901169

PATIENT
  Sex: Male

DRUGS (1)
  1. LEVAQUIN [Suspect]
     Active Substance: LEVOFLOXACIN
     Indication: SINUSITIS
     Route: 048

REACTIONS (5)
  - Paraesthesia [Unknown]
  - Pain [Unknown]
  - Muscle spasms [Unknown]
  - Toxicity to various agents [Unknown]
  - Myopathy [Unknown]

NARRATIVE: CASE EVENT DATE: 2015
